FAERS Safety Report 9971066 (Version 2)
Quarter: 2014Q1

REPORT INFORMATION
  Report Type: Report from Study
  Country: US (occurrence: US)
  Receive Date: 20140306
  Receipt Date: 20140306
  Transmission Date: 20141002
  Serious: No
  Sender: FDA-Public Use
  Company Number: US-ABBVIE-13P-163-1132744-00

PATIENT
  Age: 72 Year
  Sex: Female
  Weight: 63.56 kg

DRUGS (5)
  1. HUMIRA [Suspect]
     Indication: PSORIATIC ARTHROPATHY
     Dates: start: 201303
  2. MIRAPEX [Concomitant]
     Indication: RESTLESS LEGS SYNDROME
  3. FOLIC ACID [Concomitant]
     Indication: VITAMIN SUPPLEMENTATION
  4. PERCOCET [Concomitant]
     Indication: PAIN
  5. VITAMIN A [Concomitant]
     Indication: IMMUNE ENHANCEMENT THERAPY

REACTIONS (9)
  - Aphthous stomatitis [Not Recovered/Not Resolved]
  - Aphthous stomatitis [Not Recovered/Not Resolved]
  - Drug effect delayed [Recovered/Resolved]
  - Stomatitis [Not Recovered/Not Resolved]
  - Candida infection [Not Recovered/Not Resolved]
  - Gingival recession [Not Recovered/Not Resolved]
  - Pain [Not Recovered/Not Resolved]
  - Blood pressure increased [Recovered/Resolved]
  - Red blood cell abnormality [Not Recovered/Not Resolved]
